FAERS Safety Report 18708508 (Version 1)
Quarter: 2021Q1

REPORT INFORMATION
  Report Type: Spontaneous
  Country: US (occurrence: US)
  Receive Date: 20210106
  Receipt Date: 20210106
  Transmission Date: 20210419
  Serious: No
  Sender: FDA-Public Use
  Company Number: US-MYLANLABS-2020M1106418

PATIENT
  Age: 34 Year
  Sex: Female

DRUGS (1)
  1. KETAMINE HYDROCHLORIDE INJECTION USP [Suspect]
     Active Substance: KETAMINE HYDROCHLORIDE
     Indication: PRODUCT USED FOR UNKNOWN INDICATION
     Dosage: UNK
     Route: 030
     Dates: start: 202012

REACTIONS (3)
  - Drug ineffective [Unknown]
  - Product container seal issue [Unknown]
  - Product leakage [Unknown]

NARRATIVE: CASE EVENT DATE: 202012
